FAERS Safety Report 15412122 (Version 5)
Quarter: 2018Q4

REPORT INFORMATION
  Report Type: Report from Study
  Country: US (occurrence: US)
  Receive Date: 20180921
  Receipt Date: 20181018
  Transmission Date: 20190204
  Serious: Yes (Hospitalization, Other)
  Sender: FDA-Public Use
  Company Number: US-GILEAD-2018-0363690

PATIENT
  Age: 70 Year
  Sex: Female

DRUGS (5)
  1. AMBRISENTAN [Suspect]
     Active Substance: AMBRISENTAN
     Indication: PRODUCT USED FOR UNKNOWN INDICATION
     Dosage: 10 MG, QD
     Route: 065
     Dates: start: 20160405
  2. ADCIRCA [Concomitant]
     Active Substance: TADALAFIL
  3. TADALAFIL. [Concomitant]
     Active Substance: TADALAFIL
  4. REMODULIN [Suspect]
     Active Substance: TREPROSTINIL
     Indication: PULMONARY ARTERIAL HYPERTENSION
     Dosage: 61 NG/KG/MIN
     Route: 042
     Dates: start: 20180306
  5. AMLODIPINE [Concomitant]
     Active Substance: AMLODIPINE BESYLATE

REACTIONS (7)
  - Chronic obstructive pulmonary disease [Unknown]
  - Asthenia [Unknown]
  - Fluid retention [Unknown]
  - Nausea [Not Recovered/Not Resolved]
  - Pulmonary arterial hypertension [Unknown]
  - Hypotension [Unknown]
  - Oxygen saturation decreased [Unknown]
